FAERS Safety Report 7153896-7 (Version None)
Quarter: 2010Q4

REPORT INFORMATION
  Report Type: 
  Country: None (occurrence: None)
  Receive Date: 20101213
  Receipt Date: 20101130
  Transmission Date: 20110411
  Serious: Yes (Other)
  Sender: FDA-Public Use
  Company Number: PHHY2010JP82048

PATIENT

DRUGS (1)
  1. DIOVAN HCT [Suspect]
     Dosage: 1 DF DAILY
     Route: 048

REACTIONS (1)
  - PNEUMONIA [None]
